FAERS Safety Report 9720610 (Version 2)
Quarter: 2013Q4

REPORT INFORMATION
  Report Type: Report from Study
  Country: US (occurrence: US)
  Receive Date: 20131129
  Receipt Date: 20131231
  Transmission Date: 20140711
  Serious: Yes (Death, Hospitalization)
  Sender: FDA-Public Use
  Company Number: PHHY2013US137476

PATIENT
  Age: 72 Year
  Sex: Male

DRUGS (20)
  1. ZOMETA [Suspect]
     Dosage: UNK UKN, UNK
     Route: 042
  2. ZOMETA [Suspect]
     Dosage: UNK
     Route: 042
  3. DOCUSATE [Concomitant]
     Indication: CONSTIPATION
     Dosage: 100 MG, UNK
     Route: 048
     Dates: start: 201308
  4. DULOXETINE [Concomitant]
     Indication: DEPRESSION
     Dosage: 60 MG, UNK
     Route: 048
     Dates: start: 2008
  5. ENOXAPARIN [Concomitant]
     Indication: PULMONARY EMBOLISM
     Dosage: 120 MG, UNK
     Route: 058
     Dates: start: 20121018
  6. ADVAIR [Concomitant]
     Indication: BRONCHITIS
     Dosage: 250 UG, UNK
     Route: 055
     Dates: start: 2008
  7. ACIFOL//FOLIC ACID [Concomitant]
     Dosage: 1 MG, UNK
     Route: 048
     Dates: start: 201211
  8. LEVOTHYROXINE [Concomitant]
     Indication: HYPERTHYROIDISM
     Dosage: 75 UG, UNK
     Route: 048
     Dates: start: 2005
  9. LISINOPRIL [Concomitant]
     Indication: HYPERTENSION
     Dosage: 10 MG, UNK
     Route: 048
     Dates: start: 201304
  10. LORAZEPAM [Concomitant]
     Indication: ANXIETY
     Dosage: 0.5 MG, UNK
     Route: 048
     Dates: start: 201306
  11. OMEPRAZOLE [Concomitant]
     Indication: GASTROOESOPHAGEAL REFLUX DISEASE
     Dosage: 20 MG, UNK
     Route: 048
     Dates: start: 2003
  12. SENNA [Concomitant]
     Indication: CONSTIPATION
     Dosage: 8.6 MG, UNK
     Route: 048
     Dates: start: 201308
  13. TUMS [Concomitant]
     Indication: GASTROOESOPHAGEAL REFLUX DISEASE
     Dosage: 500 MG, UNK
     Route: 048
     Dates: start: 2003
  14. OXYCODONE [Concomitant]
     Indication: CANCER PAIN
     Dosage: 5 MG, UNK
     Route: 048
     Dates: start: 201309
  15. ALBUMIN HUMAN [Concomitant]
     Indication: HYPOALBUMINAEMIA
     Dosage: 100 ML, UNK
     Route: 042
     Dates: start: 20131009, end: 20131009
  16. ALBUMIN HUMAN [Concomitant]
     Dosage: 50 ML, UNK
     Route: 042
     Dates: start: 20131022, end: 20131022
  17. DEXTROSE + SODIUM CHLORIDE [Concomitant]
     Indication: DEHYDRATION
     Dosage: 500 ML, UNK
     Route: 042
     Dates: start: 20131014, end: 20131014
  18. SODIUM CHLORIDE [Concomitant]
     Indication: DEHYDRATION
     Dosage: 1000 ML, UNK
     Route: 042
     Dates: start: 20131022, end: 20131022
  19. CALCIUM CARBONATE [Concomitant]
     Indication: HYPOCALCAEMIA
     Dosage: 500 MG, TID
  20. CHOLECALCIFEROL [Concomitant]
     Dosage: 2000 IU, QD

REACTIONS (6)
  - Non-small cell lung cancer [Fatal]
  - Hypocalcaemia [Not Recovered/Not Resolved]
  - Hypoxia [Not Recovered/Not Resolved]
  - Tachycardia [Unknown]
  - Gait disturbance [Unknown]
  - Dyspnoea [Recovering/Resolving]
